FAERS Safety Report 8216038-2 (Version None)
Quarter: 2012Q1

REPORT INFORMATION
  Report Type: 
  Country: None (occurrence: None)
  Receive Date: 20120316
  Receipt Date: 20120305
  Transmission Date: 20120608
  Serious: No
  Sender: FDA-Public Use
  Company Number: US-B.I. PHARMACEUTICALS,INC./RIDGEFIELD-2012-BP-04184BP

PATIENT
  Age: 65 Year
  Sex: Female

DRUGS (3)
  1. ZANTAC 75 [Suspect]
     Indication: DYSPEPSIA
     Dosage: 150 MG
     Route: 048
     Dates: start: 20120228, end: 20120305
  2. XANAX [Concomitant]
     Indication: ANXIETY
     Dosage: 0.5 MG
     Route: 048
     Dates: start: 20110101
  3. PRISTIQ [Concomitant]
     Indication: ANXIETY
     Dosage: 50 MG
     Route: 048
     Dates: start: 20120301

REACTIONS (1)
  - PARAESTHESIA [None]
